FAERS Safety Report 12531105 (Version 1)
Quarter: 2016Q3

REPORT INFORMATION
  Report Type: Spontaneous
  Country: US (occurrence: None)
  Receive Date: 20160705
  Receipt Date: 20160705
  Transmission Date: 20161109
  Serious: No
  Sender: FDA-Public Use
  Company Number: None

PATIENT
  Age: 59 Year
  Sex: Male

DRUGS (35)
  1. ATENOLOL. [Concomitant]
     Active Substance: ATENOLOL
  2. VITAMIN B COMPLEX [Concomitant]
     Active Substance: CYANOCOBALAMIN\DEXPANTHENOL\NIACINAMIDE\PYRIDOXINE HYDROCHLORIDE\RIBOFLAVIN 5^-PHOSPHATE SODIUM\THIAMINE HYDROCHLORIDE\VITAMIN B COMPLEX
  3. DICLOFENAC GEL 3% [Concomitant]
  4. DOXYCYCL HYC [Concomitant]
  5. LEVOFLOXACIN. [Concomitant]
     Active Substance: LEVOFLOXACIN
  6. LEVOTHYROXIN [Concomitant]
     Active Substance: LEVOTHYROXINE
  7. LOSARTAN. [Concomitant]
     Active Substance: LOSARTAN
  8. READI-CAT 2 SUS 2.1% [Concomitant]
  9. PROAIR HFA [Concomitant]
     Active Substance: ALBUTEROL SULFATE
  10. SENNA [Concomitant]
     Active Substance: SENNA LEAF\SENNOSIDES\SENNOSIDES A AND B
  11. SPIRONOLACT [Concomitant]
  12. TAMSULOSIN [Concomitant]
     Active Substance: TAMSULOSIN
  13. ALBUTEROL. [Concomitant]
     Active Substance: ALBUTEROL
  14. BREO ELLIPTA [Concomitant]
     Active Substance: FLUTICASONE FUROATE\VILANTEROL TRIFENATATE
  15. CENTRUM SILVER [Concomitant]
     Active Substance: MINERALS\VITAMINS
  16. CLOTRIMAZOLE CRE [Concomitant]
  17. OLOPARADINE DROP0.1% [Concomitant]
  18. OMEPRAZOLE. [Concomitant]
     Active Substance: OMEPRAZOLE
  19. AMOX/K CLAV [Concomitant]
     Active Substance: AMOXICILLIN\CLAVULANATE POTASSIUM
  20. FLOMAX [Concomitant]
     Active Substance: TAMSULOSIN HYDROCHLORIDE
  21. IRON [Concomitant]
     Active Substance: IRON
  22. OXYCONDONE [Concomitant]
  23. ZOMETA [Concomitant]
     Active Substance: ZOLEDRONIC ACID
  24. CYCLOBENZAPR [Concomitant]
  25. AMITIZA [Concomitant]
     Active Substance: LUBIPROSTONE
  26. CHLORHEX GLU [Concomitant]
  27. INLYTA [Suspect]
     Active Substance: AXITINIB
     Indication: RENAL CANCER
     Route: 048
     Dates: start: 201605
  28. CYPROHEPTAD [Concomitant]
  29. FISH OIL [Concomitant]
     Active Substance: FISH OIL
  30. FUROSEMIDE. [Concomitant]
     Active Substance: FUROSEMIDE
  31. ONDANSETRON [Concomitant]
     Active Substance: ONDANSETRON
  32. PREPARATION H NOS [Concomitant]
     Active Substance: COCOA BUTTER\PETROLATUM\PHENYLEPHRINE HYDROCHLORIDE\PHENYLEPHRINE HYDROCHLORIDE OR MINERAL OIL
  33. VITAMIN C [Concomitant]
     Active Substance: ASCORBIC ACID
  34. ZOSTRIX ORIGINAL STRENGTH [Concomitant]
     Active Substance: CAPSAICIN
  35. ALLOPURINOL. [Concomitant]
     Active Substance: ALLOPURINOL

REACTIONS (9)
  - Weight decreased [None]
  - Transient ischaemic attack [None]
  - Decreased appetite [None]
  - Fatigue [None]
  - Muscle atrophy [None]
  - Balance disorder [None]
  - Speech disorder [None]
  - Dysphonia [None]
  - Confusional state [None]

NARRATIVE: CASE EVENT DATE: 201605
